FAERS Safety Report 6838523-8 (Version None)
Quarter: 2010Q3

REPORT INFORMATION
  Report Type: 
  Country: None (occurrence: None)
  Receive Date: 20100713
  Receipt Date: 20070613
  Transmission Date: 20110219
  Serious: No
  Sender: FDA-Public Use
  Company Number: US-PFIZER INC-2007050146

PATIENT
  Sex: Female
  Weight: 52.272 kg

DRUGS (3)
  1. CHANTIX [Suspect]
     Indication: SMOKING CESSATION THERAPY
     Dates: start: 20070101
  2. PLENDIL [Concomitant]
  3. PREMARIN [Concomitant]

REACTIONS (3)
  - ABNORMAL DREAMS [None]
  - EMOTIONAL DISTRESS [None]
  - VOMITING [None]
